FAERS Safety Report 25732435 (Version 2)
Quarter: 2025Q4

REPORT INFORMATION
  Report Type: Report from Study
  Country: US (occurrence: US)
  Receive Date: 20250827
  Receipt Date: 20251120
  Transmission Date: 20260118
  Serious: Yes (Other)
  Sender: ABBVIE
  Company Number: US-ABBVIE-6430449

PATIENT
  Sex: Female

DRUGS (1)
  1. SKYRIZI [Suspect]
     Active Substance: RISANKIZUMAB-RZAA
     Indication: Psoriasis
     Route: 058

REACTIONS (5)
  - Neoplasm malignant [Recovered/Resolved]
  - Blood cholesterol abnormal [Unknown]
  - Diabetes mellitus [Recovered/Resolved]
  - Dyspepsia [Unknown]
  - Constipation [Recovered/Resolved]
